FAERS Safety Report 14195604 (Version 6)
Quarter: 2019Q2

REPORT INFORMATION
  Report Type: Spontaneous
  Country: US (occurrence: US)
  Receive Date: 20171116
  Receipt Date: 20190501
  Transmission Date: 20190711
  Serious: Yes (Other)
  Sender: FDA-Public Use
  Company Number: US-ASTRAZENECA-2017SF15430

PATIENT
  Age: 63 Year
  Sex: Male

DRUGS (122)
  1. NEXIUM [Suspect]
     Active Substance: ESOMEPRAZOLE MAGNESIUM
     Indication: DYSPEPSIA
     Route: 048
     Dates: start: 200809, end: 201111
  2. NEXIUM [Suspect]
     Active Substance: ESOMEPRAZOLE MAGNESIUM
     Indication: GASTROOESOPHAGEAL REFLUX DISEASE
     Route: 048
     Dates: start: 2008, end: 2011
  3. NEXIUM [Suspect]
     Active Substance: ESOMEPRAZOLE MAGNESIUM
     Indication: GASTROOESOPHAGEAL REFLUX DISEASE
     Route: 048
     Dates: start: 2008, end: 2011
  4. PRILOSEC [Suspect]
     Active Substance: OMEPRAZOLE MAGNESIUM
     Indication: GASTROOESOPHAGEAL REFLUX DISEASE
     Dosage: GENERIC (OMEPRAZOLE)- 20 MG, 2 DF DAILY
     Route: 065
     Dates: start: 2010, end: 2013
  5. PROTONIX [Suspect]
     Active Substance: PANTOPRAZOLE SODIUM
     Indication: GASTROOESOPHAGEAL REFLUX DISEASE
     Route: 065
     Dates: start: 2009, end: 2012
  6. PROTONIX [Suspect]
     Active Substance: PANTOPRAZOLE SODIUM
     Indication: PEPTIC ULCER
     Route: 065
     Dates: start: 2009, end: 2012
  7. PROTONIX [Suspect]
     Active Substance: PANTOPRAZOLE SODIUM
     Indication: PEPTIC ULCER
     Dosage: PANTOPRAZOLE SOD DR
     Route: 065
     Dates: start: 20111110
  8. PROTONIX [Suspect]
     Active Substance: PANTOPRAZOLE SODIUM
     Indication: DYSPEPSIA
     Dosage: PANTOPRAZOLE SOD DR
     Route: 065
     Dates: start: 20111110
  9. PROTONIX [Suspect]
     Active Substance: PANTOPRAZOLE SODIUM
     Indication: GASTRIC DISORDER
     Dosage: PANTOPRAZOLE SOD DR
     Route: 065
     Dates: start: 20111110
  10. PREVACID [Suspect]
     Active Substance: LANSOPRAZOLE
     Indication: GASTROOESOPHAGEAL REFLUX DISEASE
     Dosage: LANSOFRAZOLE
     Route: 048
     Dates: start: 19990104
  11. OXYCODONE [Concomitant]
     Active Substance: OXYCODONE
     Indication: PAIN
     Dosage: TK ONE TO TWO TABLETS PO Q 6 HOURS FOR 7 DAYS
     Route: 048
     Dates: start: 20090616
  12. LUNESTA [Concomitant]
     Active Substance: ESZOPICLONE
     Indication: SLEEP DISORDER
     Route: 048
  13. AVANDIA [Concomitant]
     Active Substance: ROSIGLITAZONE MALEATE
     Route: 048
  14. MUPIROCIN. [Concomitant]
     Active Substance: MUPIROCIN
     Dates: start: 20160919
  15. NEXIUM [Suspect]
     Active Substance: ESOMEPRAZOLE MAGNESIUM
     Indication: GASTROOESOPHAGEAL REFLUX DISEASE
     Route: 048
     Dates: start: 200809, end: 201111
  16. PROTONIX [Suspect]
     Active Substance: PANTOPRAZOLE SODIUM
     Indication: GASTROOESOPHAGEAL REFLUX DISEASE
     Dosage: PANTOPRAZOLE SOD DR
     Route: 065
     Dates: start: 20111110
  17. GENTAMICIN. [Concomitant]
     Active Substance: GENTAMICIN
     Indication: INFECTION
     Dosage: APPLY TO AFFECTED AREA ONCE A DAY
     Dates: start: 20180220
  18. ZANTAC [Concomitant]
     Active Substance: RANITIDINE HYDROCHLORIDE
     Dosage: 75 (OTC)-PRIOR TO 2015
  19. ATORVASTATIN [Concomitant]
     Active Substance: ATORVASTATIN
     Route: 048
     Dates: start: 20130325
  20. AMLODIPINE [Concomitant]
     Active Substance: AMLODIPINE BESYLATE
     Dosage: AMLODIPINE BESYLATE
     Dates: start: 20150909
  21. SIMVASTATIN. [Concomitant]
     Active Substance: SIMVASTATIN
     Dates: start: 20110124
  22. ACTOS [Concomitant]
     Active Substance: PIOGLITAZONE HYDROCHLORIDE
     Dates: start: 20110124
  23. ACTOS [Concomitant]
     Active Substance: PIOGLITAZONE HYDROCHLORIDE
     Dosage: PIOGLITAZONE HCL
     Dates: start: 20150418
  24. VITAMIN D3 [Concomitant]
     Active Substance: CHOLECALCIFEROL
     Dosage: 1,000 UNIT CAPSULE- TAKE 1 CAPSULE BY MOUTH EVERY MORNING
     Route: 048
  25. NEXIUM [Suspect]
     Active Substance: ESOMEPRAZOLE MAGNESIUM
     Indication: PEPTIC ULCER
     Route: 048
     Dates: start: 200809, end: 201111
  26. NEXIUM [Suspect]
     Active Substance: ESOMEPRAZOLE MAGNESIUM
     Indication: PEPTIC ULCER
     Route: 048
     Dates: start: 200809, end: 201111
  27. PREVACID [Suspect]
     Active Substance: LANSOPRAZOLE
     Indication: GASTROOESOPHAGEAL REFLUX DISEASE
     Route: 065
     Dates: start: 2007, end: 2008
  28. IBUPROFEN. [Concomitant]
     Active Substance: IBUPROFEN
     Indication: PAIN
     Route: 048
     Dates: start: 20090629
  29. ZANTAC [Concomitant]
     Active Substance: RANITIDINE HYDROCHLORIDE
     Dosage: 300 (PRESCRIPTION)-PRIOR TO 2015
  30. ROXICET [Concomitant]
     Active Substance: ACETAMINOPHEN\OXYCODONE HYDROCHLORIDE
     Indication: PAIN
     Dosage: OXYCODONE/ACETAMINOPHEN 5/325MG TAB-TAKE 1 TO 2 BY MOUTH Q4-6H AS NEEDED
     Route: 048
     Dates: start: 19980116
  31. LEVOTHYROXINE. [Concomitant]
     Active Substance: LEVOTHYROXINE
     Route: 048
     Dates: start: 19970602
  32. LEVOTHYROXINE. [Concomitant]
     Active Substance: LEVOTHYROXINE
     Dosage: LEVOXYL
     Dates: start: 20161026
  33. DIOVAN HCT [Concomitant]
     Active Substance: HYDROCHLOROTHIAZIDE\VALSARTAN
     Dosage: 320-25, 1/2 TABLET BY MOUTH EVERY MORNING
     Route: 048
  34. LANTUS [Concomitant]
     Active Substance: INSULIN GLARGINE
     Dosage: 100 UNITS/ML VIAL
     Dates: start: 20120103
  35. NEXIUM [Suspect]
     Active Substance: ESOMEPRAZOLE MAGNESIUM
     Indication: GASTROOESOPHAGEAL REFLUX DISEASE
     Route: 048
     Dates: start: 200809, end: 201111
  36. NEXIUM [Suspect]
     Active Substance: ESOMEPRAZOLE MAGNESIUM
     Indication: PEPTIC ULCER
     Route: 048
     Dates: start: 2008, end: 2011
  37. NEXIUM [Suspect]
     Active Substance: ESOMEPRAZOLE MAGNESIUM
     Indication: GASTRIC DISORDER
     Route: 048
     Dates: start: 2008, end: 2011
  38. PRILOSEC [Suspect]
     Active Substance: OMEPRAZOLE MAGNESIUM
     Indication: GASTROOESOPHAGEAL REFLUX DISEASE
     Dosage: GENERIC (OMEPRAZOLE)- 2 DF DAILY
     Route: 048
     Dates: start: 20131121
  39. PROTONIX [Suspect]
     Active Substance: PANTOPRAZOLE SODIUM
     Indication: DYSPEPSIA
     Route: 065
     Dates: start: 200907, end: 201208
  40. PROTONIX [Suspect]
     Active Substance: PANTOPRAZOLE SODIUM
     Indication: GASTRIC DISORDER
     Route: 065
     Dates: start: 200907, end: 201208
  41. CIPRO [Concomitant]
     Active Substance: CIPROFLOXACIN HYDROCHLORIDE
     Indication: INFECTION
  42. HYDROCODONE/ACETA 5- [Concomitant]
     Dates: start: 20080604
  43. OXYCODONE [Concomitant]
     Active Substance: OXYCODONE
     Indication: PAIN
     Dosage: OXYCONTIN
     Dates: start: 20130501
  44. PERCOCET [Concomitant]
     Active Substance: ACETAMINOPHEN\OXYCODONE HYDROCHLORIDE
     Route: 065
  45. ACETAMINOPHEN. [Concomitant]
     Active Substance: ACETAMINOPHEN
     Dates: start: 19990104
  46. BACLOFEN. [Concomitant]
     Active Substance: BACLOFEN
     Dates: start: 19970728
  47. LISINOPRIL. [Concomitant]
     Active Substance: LISINOPRIL
     Dates: start: 20131121
  48. VALSARTAN. [Concomitant]
     Active Substance: VALSARTAN
     Dates: start: 20140102
  49. LASIX [Concomitant]
     Active Substance: FUROSEMIDE
     Route: 048
  50. NOVOLOG [Concomitant]
     Active Substance: INSULIN ASPART
     Dosage: 100 UNIT/ML VIAL
     Dates: start: 20111102
  51. RENVELA [Concomitant]
     Active Substance: SEVELAMER CARBONATE
     Dates: start: 20170120
  52. DOXEPIN [Concomitant]
     Active Substance: DOXEPIN
     Dosage: TAKE ONE CAPSULE BY MOUTH EVERY NIGHT AT BEDTIME
     Route: 048
     Dates: start: 19970728
  53. NEXIUM [Suspect]
     Active Substance: ESOMEPRAZOLE MAGNESIUM
     Indication: GASTRIC DISORDER
     Route: 048
     Dates: start: 200809, end: 201111
  54. PROTONIX [Suspect]
     Active Substance: PANTOPRAZOLE SODIUM
     Indication: DYSPEPSIA
     Route: 065
     Dates: start: 2009, end: 2012
  55. PROTONIX [Suspect]
     Active Substance: PANTOPRAZOLE SODIUM
     Indication: GASTRIC DISORDER
     Route: 065
     Dates: start: 2009, end: 2012
  56. PROTONIX [Suspect]
     Active Substance: PANTOPRAZOLE SODIUM
     Indication: PEPTIC ULCER
     Dosage: GENERIC (PANTOPRAZOLE)- 1 DF DAILY
     Route: 065
     Dates: start: 2011, end: 2013
  57. PROTONIX [Suspect]
     Active Substance: PANTOPRAZOLE SODIUM
     Indication: GASTROOESOPHAGEAL REFLUX DISEASE
     Dosage: GENERIC (PANTOPRAZOLE)- 1 DF DAILY
     Route: 065
     Dates: start: 2011, end: 2013
  58. PROTONIX [Suspect]
     Active Substance: PANTOPRAZOLE SODIUM
     Indication: GASTROOESOPHAGEAL REFLUX DISEASE
     Dosage: PANTOPRAZOLE SOD DR
     Route: 065
     Dates: start: 20111110
  59. AZITHROMYCIN ANHYDROUS. [Concomitant]
     Active Substance: AZITHROMYCIN ANHYDROUS
     Indication: INFECTION
     Route: 065
  60. TAGAMET HB [Concomitant]
     Active Substance: CIMETIDINE
     Dosage: (OTC) PRIOR TO 2015
  61. ZANTAC [Concomitant]
     Active Substance: RANITIDINE HYDROCHLORIDE
     Dosage: 150 (OTC)-PRIOR TO 2015
  62. RYZOLT [Concomitant]
     Active Substance: TRAMADOL HYDROCHLORIDE
     Dates: start: 20090814
  63. PERCOCET [Concomitant]
     Active Substance: ACETAMINOPHEN\OXYCODONE HYDROCHLORIDE
     Dosage: OXYOODONE-ACETAMINOPHEN
     Route: 065
     Dates: start: 20111228
  64. GLYBURIDE. [Concomitant]
     Active Substance: GLYBURIDE
     Indication: DIABETES MELLITUS
     Route: 048
     Dates: start: 19961209
  65. AMITRIPTYLINE HYDROCHLORIDE. [Concomitant]
     Active Substance: AMITRIPTYLINE HYDROCHLORIDE
     Dosage: TAKE ONE TABLET BY MOUTH AT BEDTIME
     Dates: start: 19980107
  66. LASIX [Concomitant]
     Active Substance: FUROSEMIDE
     Dates: start: 20140311
  67. METFORMIN [Concomitant]
     Active Substance: METFORMIN HYDROCHLORIDE
     Dosage: TAKE 2 TABLETS BY MOUTH WITH BREAKFAST, 1 WITH LUNCH AND 2 WITH DINNER
     Route: 048
     Dates: start: 19970326
  68. CISAPRIDE [Concomitant]
     Active Substance: CISAPRIDE
     Dosage: TAKE ONE TABLET TWICE A DAY - 30 MINUTES BEFORE BREAKFAST AND DINNER
     Dates: start: 19990214
  69. CYMBALTA [Concomitant]
     Active Substance: DULOXETINE HYDROCHLORIDE
     Route: 048
  70. FLEXERIL [Concomitant]
     Active Substance: CYCLOBENZAPRINE HYDROCHLORIDE
     Route: 048
  71. LOSARTAN. [Concomitant]
     Active Substance: LOSARTAN
     Dates: start: 20170629
  72. PRILOSEC [Suspect]
     Active Substance: OMEPRAZOLE MAGNESIUM
     Indication: GASTROOESOPHAGEAL REFLUX DISEASE
     Dosage: 2000S- 1 DF DAILY
     Route: 048
  73. PRILOSEC [Suspect]
     Active Substance: OMEPRAZOLE MAGNESIUM
     Indication: GASTROOESOPHAGEAL REFLUX DISEASE
     Dosage: GENERIC (OMEPRAZOLE)
     Route: 048
     Dates: start: 20100604
  74. PROTONIX [Suspect]
     Active Substance: PANTOPRAZOLE SODIUM
     Indication: PEPTIC ULCER
     Route: 065
     Dates: start: 200907, end: 201208
  75. PROTONIX [Suspect]
     Active Substance: PANTOPRAZOLE SODIUM
     Indication: GASTROOESOPHAGEAL REFLUX DISEASE
     Route: 065
     Dates: start: 200907, end: 201208
  76. PROTONIX [Suspect]
     Active Substance: PANTOPRAZOLE SODIUM
     Indication: PEPTIC ULCER
     Route: 065
     Dates: start: 2009, end: 2012
  77. PROTONIX [Suspect]
     Active Substance: PANTOPRAZOLE SODIUM
     Indication: DYSPEPSIA
     Dosage: GENERIC (PANTOPRAZOLE)- 1 DF DAILY
     Route: 065
     Dates: start: 2011, end: 2013
  78. PREVACID [Suspect]
     Active Substance: LANSOPRAZOLE
     Indication: GASTROOESOPHAGEAL REFLUX DISEASE
     Dosage: 30-BID
     Route: 065
  79. AZITHROMYCIN ANHYDROUS. [Concomitant]
     Active Substance: AZITHROMYCIN ANHYDROUS
     Indication: INFECTION
     Dosage: ZITHROMAX
     Route: 065
  80. ERYTHROMYCIN. [Concomitant]
     Active Substance: ERYTHROMYCIN
     Indication: INFECTION
  81. LEVAQUIN [Concomitant]
     Active Substance: LEVOFLOXACIN
     Indication: INFECTION
  82. HYDROCODONE/ACETA 5- [Concomitant]
     Dosage: HYDROCODONE/ APAP 5MG/500MG-TK 1 T PO Q 4 TO 6 H
     Route: 048
     Dates: start: 20080529
  83. ROXICET [Concomitant]
     Active Substance: ACETAMINOPHEN\OXYCODONE HYDROCHLORIDE
     Indication: PAIN
     Dosage: PERCOCET-5/325 MG- TAKE 1 TABLET DAILY
     Dates: start: 20090406
  84. NYSTATIN. [Concomitant]
     Active Substance: NYSTATIN
     Dates: start: 20111014
  85. TROGLITAZONE [Concomitant]
     Active Substance: TROGLITAZONE
     Route: 048
     Dates: start: 19980701
  86. VALSARTAN. [Concomitant]
     Active Substance: VALSARTAN
     Dates: start: 20140409
  87. NOVOLIN [Concomitant]
     Active Substance: INSULIN HUMAN
     Dosage: 70-30 100 UNLT/MI
     Dates: start: 20101119
  88. BENICAR [Concomitant]
     Active Substance: OLMESARTAN MEDOXOMIL
     Dates: start: 20110124
  89. CIMETIDINE [Concomitant]
     Active Substance: CIMETIDINE
     Route: 048
     Dates: start: 19971119
  90. LEVOXYL [Concomitant]
     Active Substance: LEVOTHYROXINE SODIUM
     Dates: start: 20170618
  91. LATANOPROST. [Concomitant]
     Active Substance: LATANOPROST
     Dates: start: 20140821
  92. VELPHORO [Concomitant]
     Active Substance: FERRIC OXYHYDROXIDE
  93. NEXIUM [Suspect]
     Active Substance: ESOMEPRAZOLE MAGNESIUM
     Indication: DYSPEPSIA
     Route: 048
     Dates: start: 2008, end: 2011
  94. PRILOSEC [Suspect]
     Active Substance: OMEPRAZOLE MAGNESIUM
     Indication: GASTROOESOPHAGEAL REFLUX DISEASE
     Dosage: GENERIC (OMEPRAZOLE)- 1 DF DAILY
     Route: 048
  95. PROTONIX [Suspect]
     Active Substance: PANTOPRAZOLE SODIUM
     Indication: PEPTIC ULCER
     Route: 065
     Dates: start: 200907, end: 201208
  96. PROTONIX [Suspect]
     Active Substance: PANTOPRAZOLE SODIUM
     Indication: GASTROOESOPHAGEAL REFLUX DISEASE
     Route: 065
     Dates: start: 2009, end: 2012
  97. PROTONIX [Suspect]
     Active Substance: PANTOPRAZOLE SODIUM
     Indication: GASTROOESOPHAGEAL REFLUX DISEASE
     Dosage: GENERIC (PANTOPRAZOLE)- 1 DF DAILY
     Route: 065
     Dates: start: 2011, end: 2013
  98. PROTONIX [Suspect]
     Active Substance: PANTOPRAZOLE SODIUM
     Indication: PEPTIC ULCER
     Dosage: GENERIC (PANTOPRAZOLE)- 1 DF DAILY
     Route: 065
     Dates: start: 2011, end: 2013
  99. CELEBREX [Concomitant]
     Active Substance: CELECOXIB
     Indication: PAIN
  100. AUGMENTIN [Concomitant]
     Active Substance: AMOXICILLIN\CLAVULANATE POTASSIUM
     Indication: INFECTION
     Dosage: AMOX-CLAV- 1 TABLET BID
     Route: 048
     Dates: start: 20091027
  101. ZANTAC [Concomitant]
     Active Substance: RANITIDINE HYDROCHLORIDE
     Dosage: 150 (PRESCRIPTION)-PRIOR TO 2015
  102. SILDENAFIL. [Concomitant]
     Active Substance: SILDENAFIL
     Dates: start: 20131121
  103. COLACE [Concomitant]
     Active Substance: DOCUSATE SODIUM
     Route: 048
  104. COREG [Concomitant]
     Active Substance: CARVEDILOL
     Route: 048
     Dates: start: 20150508
  105. MIRALAX [Concomitant]
     Active Substance: POLYETHYLENE GLYCOL 3350
     Dosage: 17 G/DOSE, 1 DF ONCE A DAY
     Route: 048
     Dates: start: 20180220
  106. CLINDAMYCIN. [Concomitant]
     Active Substance: CLINDAMYCIN
     Dates: start: 20170630
  107. NEXIUM [Suspect]
     Active Substance: ESOMEPRAZOLE MAGNESIUM
     Indication: PEPTIC ULCER
     Route: 048
     Dates: start: 2008, end: 2011
  108. PROTONIX [Suspect]
     Active Substance: PANTOPRAZOLE SODIUM
     Indication: GASTROOESOPHAGEAL REFLUX DISEASE
     Route: 065
     Dates: start: 200907, end: 201208
  109. PROTONIX [Suspect]
     Active Substance: PANTOPRAZOLE SODIUM
     Indication: GASTRIC DISORDER
     Dosage: GENERIC (PANTOPRAZOLE)- 1 DF DAILY
     Route: 065
     Dates: start: 2011, end: 2013
  110. PROTONIX [Suspect]
     Active Substance: PANTOPRAZOLE SODIUM
     Indication: PEPTIC ULCER
     Dosage: PANTOPRAZOLE SOD DR
     Route: 065
     Dates: start: 20111110
  111. NAPROXEN. [Concomitant]
     Active Substance: NAPROXEN
     Indication: PAIN
  112. AMOXICILLIN. [Concomitant]
     Active Substance: AMOXICILLIN
     Indication: INFECTION
  113. CEPHALEXIN. [Concomitant]
     Active Substance: CEPHALEXIN
     Indication: INFECTION
  114. ROXICET [Concomitant]
     Active Substance: ACETAMINOPHEN\OXYCODONE HYDROCHLORIDE
     Indication: PAIN
     Dosage: OXYCODONE/APAP 5/3
     Dates: start: 20111024
  115. NYSTATIN. [Concomitant]
     Active Substance: NYSTATIN
     Dosage: 100000 UNT/GM CREAM 15GM-APPLY TO RASH THREE TIMES A DAY
     Dates: start: 19990222
  116. LEVOTHYROXINE. [Concomitant]
     Active Substance: LEVOTHYROXINE
     Dosage: SYNTHROID
     Dates: start: 19990104
  117. LEVOTHYROXINE. [Concomitant]
     Active Substance: LEVOTHYROXINE
     Dates: start: 20131111
  118. AMLODIPINE [Concomitant]
     Active Substance: AMLODIPINE BESYLATE
     Route: 048
  119. VALSARTAN AND HYDROCHLOROTHIAZIDE [Concomitant]
     Active Substance: HYDROCHLOROTHIAZIDE\VALSARTAN
     Dosage: 320-25 MG
     Dates: start: 20140707
  120. DOXYCYCLINE HYCLATE. [Concomitant]
     Active Substance: DOXYCYCLINE HYCLATE
     Dates: start: 20150919
  121. CIALIS [Concomitant]
     Active Substance: TADALAFIL
     Route: 048
  122. LUMIGAN [Concomitant]
     Active Substance: BIMATOPROST
     Dates: start: 20170721

REACTIONS (7)
  - End stage renal disease [Unknown]
  - Chronic kidney disease [Not Recovered/Not Resolved]
  - Nephrogenic anaemia [Unknown]
  - Acute kidney injury [Not Recovered/Not Resolved]
  - Renal failure [Not Recovered/Not Resolved]
  - Hyperparathyroidism secondary [Unknown]
  - Chronic kidney disease-mineral and bone disorder [Unknown]

NARRATIVE: CASE EVENT DATE: 2014
